FAERS Safety Report 7964257-2 (Version None)
Quarter: 2011Q4

REPORT INFORMATION
  Report Type: 
  Country: None (occurrence: None)
  Receive Date: 20111121
  Receipt Date: 20110908
  Transmission Date: 20120403
  Serious: No
  Sender: FDA-Public Use
  Company Number: 1000023687

PATIENT
  Age: 49 Year
  Sex: Female

DRUGS (4)
  1. VIIBRYD [Suspect]
     Indication: ANXIETY
     Dosage: 10 MG (10 MG,1 IN 1 D),ORAL
     Route: 048
     Dates: start: 20110902, end: 20110908
  2. LEVOXYL (LEVOTHYROXINE SODIUM) (LEVOTHYROXINE SODIUM) [Concomitant]
  3. XANAX [Concomitant]
  4. MVI (MVI) (MVI) [Concomitant]

REACTIONS (6)
  - BLEPHAROSPASM [None]
  - DIARRHOEA [None]
  - NAUSEA [None]
  - INSOMNIA [None]
  - ANXIETY [None]
  - RESTLESS LEGS SYNDROME [None]
